FAERS Safety Report 9500215 (Version 1)
Quarter: 2013Q1

REPORT INFORMATION
  Report Type: Spontaneous
  Country: US (occurrence: None)
  Receive Date: 20130107
  Receipt Date: 20130107
  Transmission Date: 20140127
  Serious: No
  Sender: FDA-Public Use
  Company Number: PHHY2012US077676

PATIENT
  Age: 52 Year
  Sex: Female

DRUGS (1)
  1. GILENYA [Suspect]
     Indication: MULTIPLE SCLEROSIS
     Route: 048
     Dates: start: 20120905

REACTIONS (9)
  - Constipation [None]
  - Flatulence [None]
  - Anxiety [None]
  - Insomnia [None]
  - Fatigue [None]
  - Feeling abnormal [None]
  - Heart rate decreased [None]
  - Dizziness [None]
  - Impaired healing [None]
